FAERS Safety Report 8947660 (Version 2)
Quarter: 2013Q1

REPORT INFORMATION
  Report Type: Spontaneous
  Country: US (occurrence: US)
  Receive Date: 20121205
  Receipt Date: 20130221
  Transmission Date: 20140127
  Serious: Yes (Death)
  Sender: FDA-Public Use
  Company Number: US-ELI_LILLY_AND_COMPANY-US201211008094

PATIENT
  Sex: Female
  Weight: 41.72 kg

DRUGS (1)
  1. FORTEO [Suspect]
     Dosage: 20 UG, QD
     Route: 058
     Dates: start: 201202

REACTIONS (1)
  - Cardiac failure congestive [Fatal]
